FAERS Safety Report 6402210-0 (Version None)
Quarter: 2009Q4

REPORT INFORMATION
  Report Type: 
  Country: None (occurrence: None)
  Receive Date: 20091014
  Receipt Date: 20091014
  Transmission Date: 20100525
  Serious: No
  Sender: FDA-Public Use
  Company Number: None

PATIENT
  Age: 77 Year
  Sex: Female
  Weight: 65.7716 kg

DRUGS (1)
  1. LEVAQUIN [Suspect]
     Indication: SINUSITIS
     Dosage: 500 MG 1 DAY
     Dates: start: 20090920, end: 20090923

REACTIONS (5)
  - ASTHENIA [None]
  - DIZZINESS [None]
  - INSOMNIA [None]
  - VERTIGO [None]
  - VOMITING [None]
